FAERS Safety Report 18574369 (Version 1)
Quarter: 2020Q4

REPORT INFORMATION
  Report Type: Spontaneous
  Country: DE (occurrence: DE)
  Receive Date: 20201203
  Receipt Date: 20201203
  Transmission Date: 20210114
  Serious: Yes (Other)
  Sender: FDA-Public Use
  Company Number: DE-TEVA-2020-DE-1853065

PATIENT
  Age: 60 Year
  Sex: Female

DRUGS (8)
  1. DEXAMETHASONE 4 MG [Suspect]
     Active Substance: DEXAMETHASONE
     Indication: EPICONDYLITIS
     Dosage: 8 TIMES INJECTIONS IN THE BUTTOCKS AREA
     Route: 065
     Dates: start: 20181016, end: 20181130
  2. PREDNISOLON JENAPHARM TABLETTEN [Suspect]
     Active Substance: PREDNISOLONE
     Dosage: 60 MILLIGRAM DAILY;
     Route: 065
     Dates: start: 20181201, end: 20181205
  3. HYALORAT 2 ML [Concomitant]
     Indication: ARTHRALGIA
     Dosage: (ONE AMPOULE)
     Dates: start: 20181106, end: 20181204
  4. PREDNISOLON JENAPHARM TABLETTEN [Suspect]
     Active Substance: PREDNISOLONE
     Dosage: 20 MILLIGRAM DAILY;
     Route: 065
     Dates: start: 20181211, end: 20181215
  5. MEAVERIN 1% [Concomitant]
     Route: 065
     Dates: start: 20181016, end: 20181204
  6. LIPOTALON 4 MG [Suspect]
     Active Substance: DEXAMETHASONE PALMITATE
     Indication: EPICONDYLITIS
     Dosage: 9 TIMES INJECTIONS(ONE AMPOULE) IN THE JOINTS
     Route: 014
     Dates: start: 20181016, end: 20181204
  7. PREDNISOLON JENAPHARM TABLETTEN [Suspect]
     Active Substance: PREDNISOLONE
     Dosage: 40 MILLIGRAM DAILY;
     Route: 065
     Dates: start: 20181206, end: 20181210
  8. DICLOFENAC 1 ML [Concomitant]
     Route: 065
     Dates: start: 20181016, end: 20181130

REACTIONS (17)
  - Overdose [Unknown]
  - Balance disorder [Unknown]
  - Nausea [Recovered/Resolved]
  - Emphysema [Unknown]
  - Nocturia [Unknown]
  - Burning sensation [Not Recovered/Not Resolved]
  - Movement disorder [Recovering/Resolving]
  - Arthralgia [Recovering/Resolving]
  - Dyskinesia [Recovering/Resolving]
  - Uterine prolapse [Unknown]
  - Blood glucose increased [Unknown]
  - Fluid retention [Unknown]
  - Hallucination [Unknown]
  - Muscular weakness [Unknown]
  - Sleep disorder [Unknown]
  - Blood pressure increased [Unknown]
  - Disturbance in attention [Unknown]

NARRATIVE: CASE EVENT DATE: 2018
